FAERS Safety Report 8101137-6 (Version None)
Quarter: 2012Q1

REPORT INFORMATION
  Report Type: 
  Country: None (occurrence: None)
  Receive Date: 20120129
  Receipt Date: 20111010
  Transmission Date: 20120608
  Serious: No
  Sender: FDA-Public Use
  Company Number: US-ABBOTT-11P-163-0863668-00

PATIENT
  Age: 37 Year
  Sex: Female

DRUGS (6)
  1. HUMIRA [Suspect]
     Indication: CROHN'S DISEASE
     Dates: start: 20090301, end: 20100701
  2. IMURAN [Concomitant]
     Indication: PRODUCT USED FOR UNKNOWN INDICATION
     Dosage: 150MG DAILY
  3. HUMIRA [Suspect]
     Dates: start: 20110201
  4. VITAMIN B-12 [Concomitant]
     Indication: PRODUCT USED FOR UNKNOWN INDICATION
     Route: 030
  5. OXYCONTIN [Concomitant]
     Indication: PRODUCT USED FOR UNKNOWN INDICATION
     Dosage: EVERY FOUR TO SIX HOURS AS NEEDED
  6. HUMIRA [Suspect]
     Dates: start: 20090301, end: 20100701

REACTIONS (9)
  - KIDNEY INFECTION [None]
  - INFLAMMATION [None]
  - BLOOD URINE PRESENT [None]
  - CAT SCRATCH DISEASE [None]
  - ABDOMINAL PAIN UPPER [None]
  - WHITE BLOOD CELLS URINE POSITIVE [None]
  - URINARY TRACT INFECTION [None]
  - NEPHROLITHIASIS [None]
  - DYSURIA [None]
